FAERS Safety Report 7913297-8 (Version None)
Quarter: 2011Q4

REPORT INFORMATION
  Report Type: 
  Country: None (occurrence: None)
  Receive Date: 20111114
  Receipt Date: 20111104
  Transmission Date: 20120403
  Serious: Yes (Other)
  Sender: FDA-Public Use
  Company Number: US-ASTRAZENECA-2011SE67044

PATIENT
  Age: 43 Year
  Sex: Male
  Weight: 83.9 kg

DRUGS (10)
  1. SEROQUEL XR [Suspect]
     Indication: MANIA
     Route: 048
     Dates: start: 20080101
  2. DEPAKOTE [Concomitant]
     Indication: BIPOLAR DISORDER
  3. SEROQUEL XR [Suspect]
     Route: 048
  4. NEURONTIN [Concomitant]
     Indication: TREMOR
     Dates: start: 20090101
  5. SEROQUEL XR [Suspect]
     Indication: BIPOLAR DISORDER
     Route: 048
     Dates: start: 20080101
  6. EXCEDRIN (MIGRAINE) [Concomitant]
     Indication: MIGRAINE
     Dosage: BID
  7. CLONAZEPAM [Concomitant]
  8. SEROQUEL XR [Suspect]
     Route: 048
  9. CELEBREX [Concomitant]
     Indication: ARTHRITIS
  10. TOPAMAX [Concomitant]
     Indication: MIGRAINE
     Dates: start: 20090101

REACTIONS (9)
  - WEIGHT INCREASED [None]
  - TREMOR [None]
  - CEREBROVASCULAR ACCIDENT [None]
  - CONVERSION DISORDER [None]
  - VISION BLURRED [None]
  - CENTRAL NERVOUS SYSTEM LESION [None]
  - MIGRAINE [None]
  - MEMORY IMPAIRMENT [None]
  - HYPOAESTHESIA [None]
